FAERS Safety Report 6339600-0 (Version None)
Quarter: 2009Q3

REPORT INFORMATION
  Report Type: 
  Country: None (occurrence: None)
  Receive Date: 20090821
  Receipt Date: 20090528
  Transmission Date: 20100115
  Serious: No
  Sender: FDA-Public Use
  Company Number: 8047052

PATIENT
  Age: 56 Year
  Sex: Female

DRUGS (10)
  1. CIMZIA [Suspect]
     Indication: CROHN'S DISEASE
     Dosage: 400 MG/1/2W SC
     Route: 058
     Dates: start: 20090326
  2. CRESTOR [Concomitant]
  3. TOPROL-XL [Concomitant]
  4. IMDUR [Concomitant]
  5. PLAVIX [Concomitant]
  6. PENTASA [Concomitant]
  7. PREDNISONE TAB [Concomitant]
  8. GLUCOSAMINE [Concomitant]
  9. CALCIUM WITH VITAMIN D [Concomitant]
  10. VICODIN [Concomitant]

REACTIONS (5)
  - BLISTER [None]
  - CHAPPED LIPS [None]
  - INJECTION SITE HAEMORRHAGE [None]
  - OROPHARYNGEAL BLISTERING [None]
  - OSTEONECROSIS [None]
